FAERS Safety Report 5957175-2 (Version None)
Quarter: 2008Q4

REPORT INFORMATION
  Report Type: 
  Country: None (occurrence: None)
  Receive Date: 20081118
  Receipt Date: 20081105
  Transmission Date: 20090506
  Serious: Yes (Hospitalization)
  Sender: FDA-Public Use
  Company Number: AU-ROCHE-589466

PATIENT
  Sex: Female
  Weight: 61 kg

DRUGS (13)
  1. CAPECITABINE [Suspect]
     Route: 048
     Dates: start: 20040630, end: 20040707
  2. CAPECITABINE [Suspect]
     Dosage: FREQUENCY: D1 TO D14 EVERY 3 WEEKS
     Route: 048
     Dates: end: 20040802
  3. VINORELBINE [Suspect]
     Route: 048
     Dates: start: 20040630, end: 20040707
  4. VINORELBINE [Suspect]
     Dosage: FREQUENCY ON D1 AND D8 EVERY THREE WEEK
     Route: 048
     Dates: end: 20040728
  5. SEROQUEL [Concomitant]
     Route: 048
     Dates: start: 20031221
  6. SERETIDE [Concomitant]
     Dosage: FREQUENCY AND DOSE REPORTED : 2/D
     Route: 045
     Dates: start: 20030101
  7. ANPEC SR [Concomitant]
     Route: 048
     Dates: start: 20020101
  8. ANPEC SR [Concomitant]
     Route: 048
     Dates: start: 20040101
  9. RABEPRAZOLE SODIUM [Concomitant]
     Route: 048
     Dates: start: 20030101
  10. ZOLOFT [Concomitant]
     Route: 048
     Dates: start: 20030101
  11. ZANTAC [Concomitant]
     Route: 048
     Dates: start: 20040624
  12. METHADONE HCL [Concomitant]
     Route: 048
     Dates: start: 20040614
  13. TEMAZEPAM [Concomitant]
     Route: 048

REACTIONS (3)
  - ABDOMINAL PAIN [None]
  - ANXIETY [None]
  - NAUSEA [None]
